FAERS Safety Report 20672403 (Version 1)
Quarter: 2022Q2

REPORT INFORMATION
  Report Type: Spontaneous
  Country: US (occurrence: US)
  Receive Date: 20220405
  Receipt Date: 20220405
  Transmission Date: 20220721
  Serious: Yes (Other)
  Sender: FDA-Public Use
  Company Number: US-TEVA-2022-US-2023714

PATIENT
  Age: 81 Year
  Sex: Female

DRUGS (3)
  1. CARBOPLATIN [Interacting]
     Active Substance: CARBOPLATIN
     Indication: Fallopian tube cancer
     Route: 065
  2. PACLITAXEL [Interacting]
     Active Substance: PACLITAXEL
     Indication: Fallopian tube cancer
     Route: 065
  3. OLAPARIB [Interacting]
     Active Substance: OLAPARIB
     Indication: Fallopian tube cancer
     Route: 065

REACTIONS (2)
  - Myelodysplastic syndrome [Unknown]
  - Drug interaction [Unknown]
